FAERS Safety Report 5373287-9 (Version None)
Quarter: 2007Q2

REPORT INFORMATION
  Report Type: 
  Country: None (occurrence: None)
  Receive Date: 20070626
  Receipt Date: 20070626
  Transmission Date: 20071010
  Serious: No
  Sender: FDA-Public Use
  Company Number: None

PATIENT
  Age: 57 Year
  Sex: Female
  Weight: 55.7924 kg

DRUGS (1)
  1. EFFEXOR XR [Suspect]
     Indication: DEPRESSION
     Dosage: 37.5 MG DAILY PO
     Route: 048
     Dates: start: 20050102, end: 20070622

REACTIONS (4)
  - DISCOMFORT [None]
  - DRUG WITHDRAWAL SYNDROME [None]
  - NAUSEA [None]
  - PARAESTHESIA [None]
